FAERS Safety Report 8435160-9 (Version None)
Quarter: 2012Q2

REPORT INFORMATION
  Report Type: 
  Country: None (occurrence: None)
  Receive Date: 20120614
  Receipt Date: 20120605
  Transmission Date: 20120825
  Serious: Yes (Hospitalization)
  Sender: FDA-Public Use
  Company Number: US-BAYER-2012-042965

PATIENT
  Age: 49 Year
  Sex: Female
  Weight: 96.599 kg

DRUGS (6)
  1. YASMIN [Suspect]
     Indication: ENDOMETRIAL DISORDER
     Dosage: UNK
     Dates: start: 20040422, end: 20050117
  2. LEVOXYL [Concomitant]
     Indication: HYPOTHYROIDISM
     Route: 048
  3. LEXAPRO [Concomitant]
     Route: 048
  4. CYMBALTA [Concomitant]
     Indication: ATTENTION DEFICIT/HYPERACTIVITY DISORDER
     Route: 048
  5. CYMBALTA [Concomitant]
     Indication: MIGRAINE WITH AURA
  6. STRATTERA [Concomitant]
     Route: 048

REACTIONS (8)
  - OEDEMA PERIPHERAL [None]
  - DEEP VEIN THROMBOSIS [None]
  - INJURY [None]
  - PAIN [None]
  - PAIN IN EXTREMITY [None]
  - DYSPNOEA [None]
  - PLEURITIC PAIN [None]
  - COUGH [None]
